FAERS Safety Report 25877377 (Version 1)
Quarter: 2025Q4

REPORT INFORMATION
  Report Type: Spontaneous
  Country: IL (occurrence: IL)
  Receive Date: 20251003
  Receipt Date: 20251003
  Transmission Date: 20260118
  Serious: Yes (Other)
  Sender: STRIDES
  Company Number: None

PATIENT
  Sex: Male

DRUGS (17)
  1. PREDNISOLONE [Suspect]
     Active Substance: PREDNISOLONE
     Indication: Takayasu^s arteritis
     Dosage: UNK, GRADUALLY TAPERED
     Route: 048
  2. METHYLPREDNISOLONE [Suspect]
     Active Substance: METHYLPREDNISOLONE
     Indication: Takayasu^s arteritis
     Dosage: UNK, PULSES
     Route: 042
  3. INFLIXIMAB [Concomitant]
     Active Substance: INFLIXIMAB
     Indication: Takayasu^s arteritis
     Dosage: UNK UNK, ONCE A MONTH
     Route: 065
  4. NIFEDIPINE [Concomitant]
     Active Substance: NIFEDIPINE
     Indication: Hypertension
     Dosage: UNK, ENTERAL
  5. NIFEDIPINE [Concomitant]
     Active Substance: NIFEDIPINE
     Dosage: UNK, AT DOSES HIGHER THAN STANDARD RECOMMENDATIONS
     Route: 048
  6. CLONIDINE [Concomitant]
     Active Substance: CLONIDINE
     Indication: Hypertension
     Dosage: AT DOSES HIGHER THAN STANDARD RECOMMENDATIONS
     Route: 048
  7. LABETALOL [Concomitant]
     Active Substance: LABETALOL
     Indication: Hypertension
     Dosage: UNK
     Route: 042
  8. LABETALOL [Concomitant]
     Active Substance: LABETALOL
     Dosage: UNK, AT DOSES HIGHER THAN STANDARD RECOMMENDATIONS
     Route: 048
  9. HYDRALAZINE [Concomitant]
     Active Substance: HYDRALAZINE HYDROCHLORIDE
     Indication: Hypertension
     Dosage: UNK
     Route: 042
  10. HYDRALAZINE [Concomitant]
     Active Substance: HYDRALAZINE HYDROCHLORIDE
     Dosage: AT DOSES HIGHER THAN STANDARD RECOMMENDATIONS
     Route: 048
  11. AMLODIPINE [Concomitant]
     Active Substance: AMLODIPINE BESYLATE
     Indication: Hypertension
     Dosage: UNK, AT DOSES HIGHER THAN STANDARD RECOMMENDATIONS
     Route: 048
  12. ENALAPRIL [Concomitant]
     Active Substance: ENALAPRIL
     Indication: Hypertension
     Dosage: UNK
     Route: 065
  13. DOXAZOSIN [Concomitant]
     Active Substance: DOXAZOSIN MESYLATE
     Indication: Hypertension
     Dosage: UNK
     Route: 065
  14. MINOXIDIL [Concomitant]
     Active Substance: MINOXIDIL
     Indication: Hypertension
     Dosage: UNK
     Route: 065
  15. NITROPRUSSIDE [Concomitant]
     Active Substance: NITROPRUSSIDE
     Indication: Hypertension
     Dosage: UNK, TWO SEPARATE 3-DAY COURSES OF IV NITROPRUSSIDE
     Route: 042
  16. PHENTOLAMINE [Concomitant]
     Active Substance: PHENTOLAMINE
     Indication: Hypertension
     Dosage: UNK
     Route: 042
  17. NICARDIPINE [Concomitant]
     Active Substance: NICARDIPINE
     Indication: Hypertension
     Dosage: UNK
     Route: 042

REACTIONS (7)
  - Gross motor delay [Recovering/Resolving]
  - Inguinal hernia [Unknown]
  - Speech disorder developmental [Recovering/Resolving]
  - Food aversion [Unknown]
  - Growth retardation [Recovering/Resolving]
  - Peritonitis bacterial [Unknown]
  - Off label use [Unknown]
